FAERS Safety Report 12900934 (Version 1)
Quarter: 2016Q4

REPORT INFORMATION
  Report Type: Spontaneous
  Country: US (occurrence: US)
  Receive Date: 20161101
  Receipt Date: 20161101
  Transmission Date: 20170207
  Serious: Yes (Hospitalization, Disabling, Other)
  Sender: FDA-Public Use
  Company Number: US-009507513-1103USA03955

PATIENT
  Sex: Female
  Weight: 70.3 kg

DRUGS (5)
  1. FOSAMAX [Suspect]
     Active Substance: ALENDRONATE SODIUM
     Dosage: 70 MG, QW
     Route: 048
     Dates: start: 200103, end: 20051011
  2. FOSAMAX PLUS D [Suspect]
     Active Substance: ALENDRONATE SODIUM\CHOLECALCIFEROL
     Indication: OSTEOPENIA
     Dosage: 70MG/2800 IU, QW
     Route: 048
     Dates: start: 20060215, end: 200911
  3. ZOCOR [Suspect]
     Active Substance: SIMVASTATIN
     Indication: PRODUCT USED FOR UNKNOWN INDICATION
     Dosage: UNK, UNKNOWN
     Route: 048
  4. FOSAMAX [Suspect]
     Active Substance: ALENDRONATE SODIUM
     Indication: OSTEOPENIA
     Dosage: 5 MG, QD
     Route: 048
     Dates: start: 19981019, end: 200103
  5. FOSAMAX PLUS D [Suspect]
     Active Substance: ALENDRONATE SODIUM\CHOLECALCIFEROL
     Dosage: 70MG/5600 IU, QW
     Route: 048
     Dates: start: 20080620, end: 20091103

REACTIONS (59)
  - Tooth fracture [Unknown]
  - Fall [Unknown]
  - Myalgia [Unknown]
  - Lumbar vertebral fracture [Unknown]
  - Uveitis [Unknown]
  - Lumbar radiculopathy [Unknown]
  - Intervertebral disc degeneration [Unknown]
  - Nerve compression [Unknown]
  - Overweight [Unknown]
  - Laryngitis [Unknown]
  - Macular hole [Unknown]
  - Labile blood pressure [Unknown]
  - Myopia [Unknown]
  - Lymph gland infection [Recovered/Resolved]
  - Spondylolisthesis [Unknown]
  - Foot deformity [Unknown]
  - Vitamin D deficiency [Unknown]
  - Prescribed overdose [Unknown]
  - Pain in extremity [Unknown]
  - Meniscus injury [Unknown]
  - Fall [Unknown]
  - Bartholin^s cyst [Unknown]
  - Dyslipidaemia [Unknown]
  - Hypersensitivity [Unknown]
  - Low turnover osteopathy [Unknown]
  - Atypical femur fracture [Recovering/Resolving]
  - Back pain [Not Recovered/Not Resolved]
  - Pain in extremity [Not Recovered/Not Resolved]
  - Balance disorder [Unknown]
  - Neck pain [Unknown]
  - Rhinitis [Unknown]
  - Cystoid macular oedema [Unknown]
  - Synovial cyst [Unknown]
  - Arthralgia [Unknown]
  - Gastrooesophageal reflux disease [Unknown]
  - Post-traumatic stress disorder [Unknown]
  - Palpitations [Unknown]
  - Glaucoma [Not Recovered/Not Resolved]
  - Bartholin^s cyst [Unknown]
  - Rash [Unknown]
  - Hypoaesthesia [Recovering/Resolving]
  - Visual acuity reduced [Unknown]
  - Femur fracture [Recovered/Resolved]
  - Drug hypersensitivity [Unknown]
  - Blood glucose increased [Unknown]
  - Neuralgia [Unknown]
  - Syncope [Unknown]
  - Hypotension [Unknown]
  - Intervertebral disc space narrowing [Unknown]
  - Pain in extremity [Unknown]
  - Anisometropia [Unknown]
  - Hypertension [Not Recovered/Not Resolved]
  - Blood cholesterol increased [Not Recovered/Not Resolved]
  - Umbilical hernia [Unknown]
  - Fall [Unknown]
  - Road traffic accident [Unknown]
  - Scoliosis [Unknown]
  - Vertebral foraminal stenosis [Unknown]
  - Arthritis [Unknown]

NARRATIVE: CASE EVENT DATE: 1998
